FAERS Safety Report 5041096-6 (Version None)
Quarter: 2006Q3

REPORT INFORMATION
  Report Type: 
  Country: None (occurrence: None)
  Receive Date: 20060703
  Receipt Date: 20060622
  Transmission Date: 20061208
  Serious: Yes (Other)
  Sender: FDA-Public Use
  Company Number: DE-ROCHE-452964

PATIENT
  Age: 71 Year

DRUGS (1)
  1. KEVATRIL [Suspect]
     Indication: DRUG USE FOR UNKNOWN INDICATION
     Route: 065
     Dates: start: 20051128, end: 20060313

REACTIONS (1)
  - THROMBOSIS [None]
